FAERS Safety Report 9553917 (Version 1)
Quarter: 2013Q3

REPORT INFORMATION
  Report Type: Spontaneous
  Country: US (occurrence: None)
  Receive Date: 20130924
  Receipt Date: 20130924
  Transmission Date: 20140515
  Serious: Yes (Hospitalization)
  Sender: FDA-Public Use
  Company Number: None

PATIENT
  Sex: Male

DRUGS (3)
  1. ASPIRIN [Suspect]
     Route: 048
     Dates: start: 20130226, end: 20130620
  2. LISINOPRIL [Suspect]
  3. PEPCID [Suspect]

REACTIONS (2)
  - Abdominal pain [None]
  - Middle insomnia [None]
